FAERS Safety Report 10723609 (Version 2)
Quarter: 2015Q1

REPORT INFORMATION
  Report Type: Spontaneous
  Country: US (occurrence: None)
  Receive Date: 20150114
  Receipt Date: 20150115
  Transmission Date: 20150721
  Serious: Yes (Hospitalization)
  Sender: FDA-Public Use
  Company Number: CIO14088254

PATIENT
  Age: 54 Year
  Sex: Female

DRUGS (2)
  1. OMEPRAZOLE. [Concomitant]
     Active Substance: OMEPRAZOLE
  2. CREST 3D WHITE [Suspect]
     Active Substance: SODIUM FLUORIDE
     Dosage: 1 APPLIC, 3/DAY, INTRAORAL
     Dates: start: 20130101, end: 20130329

REACTIONS (7)
  - Extrasystoles [None]
  - Reaction to drug excipients [None]
  - Palpitations [None]
  - Cardiac stress test abnormal [None]
  - Myocardial infarction [None]
  - Dyspnoea [None]
  - Respiration abnormal [None]

NARRATIVE: CASE EVENT DATE: 201301
